FAERS Safety Report 4886623-4 (Version None)
Quarter: 2005Q4

REPORT INFORMATION
  Report Type: 
  Country: None (occurrence: None)
  Receive Date: 20051220
  Receipt Date: 20050110
  Transmission Date: 20060501
  Serious: Yes (Other)
  Sender: FDA-Public Use
  Company Number: HQWYE626613JAN05

PATIENT
  Age: 59 Year
  Sex: Female
  Weight: 95.34 kg

DRUGS (3)
  1. EFFEXOR XR [Suspect]
     Indication: HOT FLUSH
     Dosage: 37.5 MG 1X PER 1 TOT, ORAL
     Route: 048
     Dates: start: 20041231, end: 20041231
  2. SYNTHROID [Concomitant]
  3. MULTIIVITAMINS (ASCORBIC ACID/ERGOCALCIFEROL/FOLIC ACID/NICOTINAMIDE/A [Concomitant]

REACTIONS (3)
  - CHILLS [None]
  - MENTAL IMPAIRMENT [None]
  - SUICIDAL IDEATION [None]
